FAERS Safety Report 10261655 (Version 1)
Quarter: 2014Q2

REPORT INFORMATION
  Report Type: Spontaneous
  Country: US (occurrence: None)
  Receive Date: 20140624
  Receipt Date: 20140624
  Transmission Date: 20141212
  Serious: No
  Sender: FDA-Public Use
  Company Number: None

PATIENT
  Age: 74 Year
  Sex: Female

DRUGS (1)
  1. FORTEO 600 MCG DEVICE [Suspect]
     Indication: ILL-DEFINED DISORDER
     Dosage: 20MCG, DAILY, SQ
     Route: 058
     Dates: start: 20140523

REACTIONS (1)
  - Oedema [None]
